FAERS Safety Report 11252627 (Version 1)
Quarter: 2015Q3

REPORT INFORMATION
  Report Type: Spontaneous
  Country: US (occurrence: None)
  Receive Date: 20150707
  Receipt Date: 20150707
  Transmission Date: 20151125
  Serious: Yes (Other)
  Sender: FDA-Public Use
  Company Number: None

PATIENT
  Age: 83 Year
  Sex: Female
  Weight: 53.9 kg

DRUGS (9)
  1. TRAMADOL. [Concomitant]
     Active Substance: TRAMADOL
  2. TIZANIDINE. [Suspect]
     Active Substance: TIZANIDINE
     Indication: BACK PAIN
     Route: 048
     Dates: start: 20150527, end: 20150702
  3. ONDANSETRON [Concomitant]
     Active Substance: ONDANSETRON
  4. ATIVAN [Concomitant]
     Active Substance: LORAZEPAM
  5. TORADOL [Concomitant]
     Active Substance: KETOROLAC TROMETHAMINE
  6. BISACODYL. [Concomitant]
     Active Substance: BISACODYL
  7. ACETAMINOPHEN. [Concomitant]
     Active Substance: ACETAMINOPHEN
  8. ZANAFLEX [Concomitant]
     Active Substance: TIZANIDINE HYDROCHLORIDE
  9. MORPHINE [Concomitant]
     Active Substance: MORPHINE

REACTIONS (2)
  - Confusional state [None]
  - Memory impairment [None]

NARRATIVE: CASE EVENT DATE: 20150702
